FAERS Safety Report 5431263-1 (Version None)
Quarter: 2007Q3

REPORT INFORMATION
  Report Type: 
  Country: None (occurrence: None)
  Receive Date: 20070828
  Receipt Date: 20070817
  Transmission Date: 20080115
  Serious: Yes (Other)
  Sender: FDA-Public Use
  Company Number: 2007-163089-NL

PATIENT
  Age: 55 Year
  Sex: Male

DRUGS (1)
  1. DEXAMETHASONE 0.5MG TAB [Suspect]
     Indication: DEAFNESS NEUROSENSORY

REACTIONS (1)
  - TYMPANIC MEMBRANE PERFORATION [None]
